FAERS Safety Report 8660460 (Version 3)
Quarter: 2012Q4

REPORT INFORMATION
  Report Type: 
  Country: US (occurrence: US)
  Receive Date: 20120711
  Receipt Date: 20121022
  Transmission Date: 20130627
  Serious: No
  Sender: FDA-Public Use
  Company Number: US-009507513-1207USA000369

PATIENT
  Sex: Female

DRUGS (5)
  1. PROVENTIL [Suspect]
     Indication: ASTHMA
     Dosage: 2 DF, q4h
     Route: 055
     Dates: start: 201206
  2. LIPITOR [Concomitant]
  3. LISINOPRIL [Concomitant]
  4. PREMARIN [Concomitant]
  5. ETODOLAC [Concomitant]

REACTIONS (3)
  - Retching [Recovered/Resolved]
  - Vomiting [Recovered/Resolved]
  - Product taste abnormal [Not Recovered/Not Resolved]
